FAERS Safety Report 4420456-8 (Version None)
Quarter: 2004Q3

REPORT INFORMATION
  Report Type: 
  Country: None (occurrence: None)
  Receive Date: 20040809
  Receipt Date: 20040304
  Transmission Date: 20050211
  Serious: Yes (Other)
  Sender: FDA-Public Use
  Company Number: US-GLAXOSMITHKLINE-A0501216A

PATIENT

DRUGS (1)
  1. PAXIL CR [Suspect]
     Indication: ILL-DEFINED DISORDER
     Route: 048
     Dates: end: 20031101

REACTIONS (2)
  - CONVULSION [None]
  - HYPONATRAEMIA [None]
